FAERS Safety Report 25543659 (Version 1)
Quarter: 2025Q3

REPORT INFORMATION
  Report Type: Spontaneous
  Country: US (occurrence: US)
  Receive Date: 20250711
  Receipt Date: 20250711
  Transmission Date: 20251021
  Serious: No
  Sender: BAYER HEALTHCARE LLC
  Company Number: US-BAYER-2025A090762

PATIENT
  Age: 85 Year
  Sex: Male

DRUGS (1)
  1. CLARITIN [Suspect]
     Active Substance: LORATADINE
     Indication: Ear discomfort
     Dosage: 1 DF, QD
     Route: 048

REACTIONS (2)
  - Wrong technique in product usage process [Unknown]
  - Product use in unapproved indication [None]

NARRATIVE: CASE EVENT DATE: 20250701
